FAERS Safety Report 4784037-9 (Version None)
Quarter: 2005Q3

REPORT INFORMATION
  Report Type: 
  Country: None (occurrence: None)
  Receive Date: 20050930
  Receipt Date: 20050920
  Transmission Date: 20060218
  Serious: Yes (Hospitalization)
  Sender: FDA-Public Use
  Company Number: PH-BOEHRINGER INGELHEIM PHARMACEUTICALS, INC.-2005-BP-17143RP

PATIENT

DRUGS (5)
  1. TIOTROPIUM INH. POWDER [Suspect]
     Indication: CHRONIC OBSTRUCTIVE PULMONARY DISEASE
     Route: 055
  2. CEFUROXIME [Concomitant]
     Indication: INFECTION
     Route: 048
  3. SALBUTAMOL + GUIAFENESIN [Concomitant]
     Indication: COUGH
     Route: 048
  4. KLARICID [Concomitant]
     Indication: INFECTION
     Route: 048
  5. ACETYLCYSTEINE [Concomitant]
     Indication: INCREASED UPPER AIRWAY SECRETION

REACTIONS (5)
  - CHRONIC OBSTRUCTIVE PULMONARY DISEASE [None]
  - ERYTHEMA [None]
  - PNEUMONIA [None]
  - PYREXIA [None]
  - RASH [None]
